FAERS Safety Report 20502721 (Version 1)
Quarter: 2022Q1

REPORT INFORMATION
  Report Type: Spontaneous
  Country: US (occurrence: None)
  Receive Date: 20220222
  Receipt Date: 20220222
  Transmission Date: 20220424
  Serious: Yes (Hospitalization)
  Sender: FDA-Public Use
  Company Number: None

PATIENT
  Sex: Male
  Weight: 16.1 kg

DRUGS (4)
  1. DEXAMETHASONE [Suspect]
     Active Substance: DEXAMETHASONE
  2. CYTARABINE [Concomitant]
     Active Substance: CYTARABINE
  3. METHOTREXATE PEG-L-ASPARAGINASE (PEGASPARGASE, ONCOSPAR) [Concomitant]
  4. VINCRISTINE SULFARE [Concomitant]

REACTIONS (5)
  - Febrile neutropenia [None]
  - Oesophageal candidiasis [None]
  - Malnutrition [None]
  - Pneumoperitoneum [None]
  - Large intestine perforation [None]

NARRATIVE: CASE EVENT DATE: 20220216
